FAERS Safety Report 15781924 (Version 1)
Quarter: 2019Q1

REPORT INFORMATION
  Report Type: Spontaneous
  Country: TR (occurrence: TR)
  Receive Date: 20190102
  Receipt Date: 20190102
  Transmission Date: 20190417
  Serious: Yes (Hospitalization, Other)
  Sender: FDA-Public Use
  Company Number: TR-MYLANLABS-2018M1096680

PATIENT
  Age: 24 Year
  Sex: Female

DRUGS (4)
  1. AMIODARONE [Suspect]
     Active Substance: AMIODARONE
     Indication: ATRIAL TACHYCARDIA
     Route: 042
  2. METOPROLOL. [Suspect]
     Active Substance: METOPROLOL
     Indication: ATRIAL TACHYCARDIA
     Route: 065
  3. ADENOSINE. [Suspect]
     Active Substance: ADENOSINE
     Indication: ATRIAL TACHYCARDIA
     Route: 042
  4. DIGOXIN. [Suspect]
     Active Substance: DIGOXIN
     Indication: ATRIAL TACHYCARDIA
     Route: 065

REACTIONS (3)
  - Drug ineffective [Unknown]
  - Haemodynamic instability [Recovering/Resolving]
  - Maternal exposure during pregnancy [Unknown]
